FAERS Safety Report 24110015 (Version 1)
Quarter: 2024Q3

REPORT INFORMATION
  Report Type: Spontaneous
  Country: US (occurrence: None)
  Receive Date: 20240717
  Receipt Date: 20240717
  Transmission Date: 20241016
  Serious: Yes (Death, Hospitalization)
  Sender: Public
  Company Number: None

PATIENT
  Age: 64 Year
  Sex: Male
  Weight: 116.5 kg

DRUGS (1)
  1. TEMOZOLOMIDE [Suspect]
     Active Substance: TEMOZOLOMIDE
     Dates: end: 20240623

REACTIONS (8)
  - Seizure [None]
  - Pulseless electrical activity [None]
  - Hypoxia [None]
  - Pulmonary oedema [None]
  - Lung infiltration [None]
  - Fall [None]
  - Skin laceration [None]
  - Brain injury [None]

NARRATIVE: CASE EVENT DATE: 20240626
